FAERS Safety Report 24298806 (Version 1)
Quarter: 2024Q3

REPORT INFORMATION
  Report Type: Spontaneous
  Country: US (occurrence: None)
  Receive Date: 20240906
  Receipt Date: 20240906
  Transmission Date: 20241017
  Serious: No
  Sender: Public
  Company Number: None

PATIENT
  Age: 73 Year
  Sex: Female
  Weight: 90.45 kg

DRUGS (9)
  1. WEGOVY [Suspect]
     Active Substance: SEMAGLUTIDE
     Indication: Weight decreased
     Dosage: 4 INJECTION 7 DAYS
  2. LOSARTAN [Concomitant]
     Active Substance: LOSARTAN\LOSARTAN POTASSIUM
  3. spironolactone ezetimibe [Concomitant]
  4. RESTASIS [Concomitant]
     Active Substance: CYCLOSPORINE
  5. WEGOVY [Concomitant]
     Active Substance: SEMAGLUTIDE
  6. estradiol vaginally insert [Concomitant]
  7. NEXIUM [Concomitant]
     Active Substance: ESOMEPRAZOLE MAGNESIUM
  8. SACCHAROMYCES CEREVISIAE [Concomitant]
     Active Substance: SACCHAROMYCES CEREVISIAE
  9. VITAMIN B12 [Concomitant]
     Active Substance: CYANOCOBALAMIN

REACTIONS (3)
  - Therapy change [None]
  - Heart rate decreased [None]
  - Fatigue [None]

NARRATIVE: CASE EVENT DATE: 20240901
